FAERS Safety Report 21450380 (Version 3)
Quarter: 2022Q4

REPORT INFORMATION
  Report Type: Report from Study
  Country: US (occurrence: US)
  Receive Date: 20221013
  Receipt Date: 20221213
  Transmission Date: 20230113
  Serious: Yes (Other)
  Sender: FDA-Public Use
  Company Number: US-NOVARTISPH-NVSC2022US229527

PATIENT
  Sex: Female

DRUGS (2)
  1. KISQALI [Suspect]
     Active Substance: RIBOCICLIB
     Indication: Breast cancer
     Dosage: 600 MG, QD
     Route: 048
  2. KISQALI [Suspect]
     Active Substance: RIBOCICLIB
     Dosage: 400 MG, QD
     Route: 048

REACTIONS (6)
  - Arrhythmia [Recovered/Resolved]
  - Oedema [Recovered/Resolved]
  - Blood calcium decreased [Not Recovered/Not Resolved]
  - Peripheral swelling [Unknown]
  - Nausea [Recovered/Resolved]
  - Vomiting [Recovered/Resolved]
